FAERS Safety Report 16645485 (Version 2)
Quarter: 2021Q3

REPORT INFORMATION
  Report Type: Spontaneous
  Country: US (occurrence: US)
  Receive Date: 20190730
  Receipt Date: 20210811
  Transmission Date: 20211014
  Serious: Yes (Other)
  Sender: FDA-Public Use
  Company Number: US-009507513-1708USA004758

PATIENT
  Sex: Male
  Weight: 111.58 kg

DRUGS (7)
  1. PRINIVIL [Suspect]
     Active Substance: LISINOPRIL
     Indication: HYPERTENSION
     Dosage: 10 MILLIGRAM
     Route: 048
     Dates: start: 2000
  2. HYDROXYZINE [Concomitant]
     Active Substance: HYDROXYZINE HYDROCHLORIDE
     Indication: ANXIETY
     Dosage: TAKE 1 ?2 TABLET BY ORAL ROUTE TID AS NEEDED
     Route: 048
  3. HYDROCHLOROTHIAZIDE. [Concomitant]
     Active Substance: HYDROCHLOROTHIAZIDE
     Indication: HYPERTENSION
     Dosage: TAKE 1 TABLET BY MOUTH ONE TIME DAILY
     Route: 048
     Dates: start: 2010, end: 2017
  4. HYDROXYZINE [Concomitant]
     Active Substance: HYDROXYZINE HYDROCHLORIDE
     Indication: NAUSEA
  5. ZOSTAVAX [Suspect]
     Active Substance: VARICELLA-ZOSTER VIRUS STRAIN OKA/MERCK LIVE ANTIGEN
     Indication: PROPHYLAXIS
     Route: 065
     Dates: start: 20131007, end: 20131007
  6. ZOSTAVAX [Suspect]
     Active Substance: VARICELLA-ZOSTER VIRUS STRAIN OKA/MERCK LIVE ANTIGEN
     Indication: ROUTINE HEALTH MAINTENANCE
  7. DIAZEPAM. [Concomitant]
     Active Substance: DIAZEPAM
     Indication: MUSCLE SPASMS
     Dosage: TAKE 1 ?2 TABLET BY ORAL ROUTE TID AS NEEDED
     Route: 048

REACTIONS (11)
  - Back disorder [Unknown]
  - Ophthalmic herpes zoster [Not Recovered/Not Resolved]
  - Vaccination failure [Unknown]
  - Scar [Unknown]
  - Herpes zoster [Unknown]
  - Cough [Unknown]
  - Product dose omission issue [Unknown]
  - Pain [Unknown]
  - Neuralgia [Unknown]
  - Spinal disorder [Unknown]
  - Herpes zoster [Recovered/Resolved]

NARRATIVE: CASE EVENT DATE: 20150922
